FAERS Safety Report 23665287 (Version 2)
Quarter: 2024Q2

REPORT INFORMATION
  Report Type: Spontaneous
  Country: US (occurrence: US)
  Receive Date: 20240322
  Receipt Date: 20240510
  Transmission Date: 20240716
  Serious: Yes (Other)
  Sender: FDA-Public Use
  Company Number: US-NEUROCRINE BIOSCIENCES INC.-2024NBI02299

PATIENT
  Age: 32 Year
  Sex: Male

DRUGS (29)
  1. INGREZZA [Suspect]
     Active Substance: VALBENAZINE
     Indication: Tardive dyskinesia
     Dosage: 80 MILLIGRAM
     Route: 065
     Dates: start: 20220524, end: 20231011
  2. INGREZZA [Suspect]
     Active Substance: VALBENAZINE
     Dosage: 40 MILLIGRAM
     Route: 065
     Dates: start: 20220309, end: 20220608
  3. CLONIDINE HYDROCHLORIDE [Concomitant]
     Active Substance: CLONIDINE HYDROCHLORIDE
     Indication: Impulse-control disorder
     Dosage: 1 DOSAGE FORM, TID
     Route: 048
  4. ATOMOXETINE HYDROCHLORIDE [Concomitant]
     Active Substance: ATOMOXETINE HYDROCHLORIDE
     Indication: Impulse-control disorder
     Dosage: 3 DOSAGE FORM, QD
     Route: 048
  5. ATOMOXETINE HYDROCHLORIDE [Concomitant]
     Active Substance: ATOMOXETINE HYDROCHLORIDE
     Indication: Attention deficit hyperactivity disorder
     Dosage: 4 DOSAGE FORM, QD
     Route: 048
  6. CLONAZEPAM [Concomitant]
     Active Substance: CLONAZEPAM
     Indication: Seizure
     Dosage: 1 DOSAGE FORM, QD PRN
     Route: 048
  7. QUETIAPINE FUMARATE [Concomitant]
     Active Substance: QUETIAPINE FUMARATE
     Indication: Impulse-control disorder
     Dosage: 1 DOSAGE FORM, AM AND 4 PM
     Route: 048
  8. FOSAMAX [Concomitant]
     Active Substance: ALENDRONATE SODIUM
     Dosage: 1 DOSAGE FORM, WEEKLY
     Route: 048
  9. TRAMADOL HCL [Concomitant]
     Active Substance: TRAMADOL HYDROCHLORIDE
     Dosage: 1 DOSAGE FORM, QD
     Route: 048
  10. MONTELUKAST SODIUM [Concomitant]
     Active Substance: MONTELUKAST SODIUM
     Dosage: 1 DOSAGE FORM, QD
     Route: 048
  11. CLORAZEPATE DIPOTASSIUM [Concomitant]
     Active Substance: CLORAZEPATE DIPOTASSIUM
     Dosage: 1 DOSAGE FORM, QHS
     Route: 048
  12. VITAMINS NOS [Concomitant]
     Active Substance: VITAMINS
     Dosage: 1 UNK
  13. FIBER LAXATIVE [Concomitant]
     Indication: Constipation
     Dosage: 2 DOSAGE FORM, BID
     Route: 048
  14. DOCUSATE SODIUM [Concomitant]
     Active Substance: DOCUSATE SODIUM
     Dosage: 1 DOSAGE FORM, BID
     Route: 048
  15. FAMOTIDINE [Concomitant]
     Active Substance: FAMOTIDINE
     Dosage: 1 DOSAGE FORM, BID 30 MINUTES-1 HOURR BEFORE MEALS
     Route: 048
  16. FENOFIBRATE [Concomitant]
     Active Substance: FENOFIBRATE
     Dosage: 1 DOSAGE FORM, QHS
     Route: 048
  17. BISACODYL [Concomitant]
     Active Substance: BISACODYL
     Indication: Constipation
     Dosage: 1 DOSAGE FORM, PRN
     Route: 054
  18. TYLENOL COLD MEDICATION [Concomitant]
     Indication: Nasopharyngitis
     Dosage: 1 TABLET, EVERY 8 HOURS PRN
     Route: 048
  19. SILTUSSIN DAS [Concomitant]
     Active Substance: GUAIFENESIN
     Dosage: 5 MILLILITER, AS NEEDED EVERY 6 HOURS
     Route: 048
  20. PROMETHAZINE HYDROCHLORIDE [Concomitant]
     Active Substance: PROMETHAZINE HYDROCHLORIDE
     Dosage: 1 DOSAGE FORM, AS NEEDED EVERY 6 HOURS
     Route: 048
  21. FISH OIL [Concomitant]
     Active Substance: FISH OIL
     Dosage: 2 DOSAGE FORM, QD
     Route: 048
  22. SENNA [Concomitant]
     Active Substance: SENNA LEAF\SENNOSIDES\SENNOSIDES A AND B
     Dosage: 1 DOSAGE FORM, 4 PM
     Route: 048
  23. ONDANSETRON HYDROCHLORIDE [Concomitant]
     Active Substance: ONDANSETRON HYDROCHLORIDE
     Dosage: 1 DOSAGE FORM, AS NEEDED Q 6 HOURS
     Route: 048
  24. POLYETHYLENE GLYCOL 3350 [Concomitant]
     Active Substance: POLYETHYLENE GLYCOL 3350
     Dosage: 17 GM MIXED WITH 8 OUNCES OF FLUID, BID
     Route: 048
  25. TYLENOL [Concomitant]
     Active Substance: ACETAMINOPHEN
     Dosage: 2 DOSAGE FORM, EVERY 6 HOURS PRN
     Route: 048
  26. LAMOTRIGINE [Concomitant]
     Active Substance: LAMOTRIGINE
     Indication: Impulse-control disorder
     Dosage: 100 UNK, QHS
     Route: 048
  27. RISPERIDONE [Concomitant]
     Active Substance: RISPERIDONE
  28. BENZTROPINE [Concomitant]
     Active Substance: BENZTROPINE
  29. ATOMOXETINE [Concomitant]
     Active Substance: ATOMOXETINE\ATOMOXETINE HYDROCHLORIDE
     Indication: Attention deficit hyperactivity disorder
     Dosage: 72 GRAM
     Route: 048

REACTIONS (11)
  - Clavicle fracture [Recovering/Resolving]
  - Patella fracture [Recovered/Resolved]
  - Rib fracture [Recovering/Resolving]
  - Compression fracture [Recovering/Resolving]
  - Joint dislocation [Unknown]
  - Drug ineffective [Unknown]
  - Skin injury [Recovering/Resolving]
  - Osteopenia [Recovering/Resolving]
  - Fall [Recovered/Resolved]
  - Gait disturbance [Recovering/Resolving]
  - Anxiety [Recovering/Resolving]

NARRATIVE: CASE EVENT DATE: 20220408
